FAERS Safety Report 16347004 (Version 1)
Quarter: 2019Q2

REPORT INFORMATION
  Report Type: Spontaneous
  Country: CA (occurrence: CA)
  Receive Date: 20190523
  Receipt Date: 20190523
  Transmission Date: 20190711
  Serious: Yes (Hospitalization, Other)
  Sender: FDA-Public Use
  Company Number: CA-AUROBINDO-AUR-APL-2019-028050

PATIENT

DRUGS (2)
  1. REMICADE [Suspect]
     Active Substance: INFLIXIMAB
     Indication: COLITIS ULCERATIVE
     Dosage: 10 MILLIGRAM/KILOGRAM, 1 EVERY 4 WEEKS
     Route: 042
  2. VALGANCICLOVIR. [Suspect]
     Active Substance: VALGANCICLOVIR
     Indication: CYTOMEGALOVIRUS GASTROINTESTINAL INFECTION
     Dosage: UNK
     Route: 065

REACTIONS (2)
  - Cytomegalovirus gastrointestinal infection [Recovered/Resolved]
  - Drug hypersensitivity [Recovered/Resolved]
